FAERS Safety Report 16006690 (Version 1)
Quarter: 2019Q1

REPORT INFORMATION
  Report Type: Spontaneous
  Country: US (occurrence: US)
  Receive Date: 20190130
  Receipt Date: 20190130
  Transmission Date: 20190418
  Serious: No
  Sender: FDA-Public Use
  Company Number: None

PATIENT
  Age: 94 Year
  Sex: Female

DRUGS (1)
  1. OTEZLA [Suspect]
     Active Substance: APREMILAST
     Indication: PSORIASIS
     Dosage: ?          OTHER DOSE:1 TABLET; AS DIRECTED?
     Route: 048
     Dates: start: 201706

REACTIONS (4)
  - Skin laceration [None]
  - Skin fragility [None]
  - Decreased appetite [None]
  - Fat tissue increased [None]
